FAERS Safety Report 11064199 (Version 2)
Quarter: 2015Q2

REPORT INFORMATION
  Report Type: Report from Study
  Country: US (occurrence: US)
  Receive Date: 20150424
  Receipt Date: 20150626
  Transmission Date: 20150821
  Serious: Yes (Death, Hospitalization, Other)
  Sender: FDA-Public Use
  Company Number: US-EXELIXIS-CABO-15005258

PATIENT
  Age: 58 Year
  Sex: Female
  Weight: 52 kg

DRUGS (9)
  1. COMETRIQ [Suspect]
     Active Substance: CABOZANTINIB S-MALATE
     Indication: BREAST CANCER METASTATIC
     Dosage: 120 MG, QD
     Route: 048
     Dates: start: 20150228, end: 20150305
  2. ONDANSETRON [Concomitant]
     Active Substance: ONDANSETRON
  3. OMEPRAZOLE. [Concomitant]
     Active Substance: OMEPRAZOLE
  4. LORAZEPAM. [Concomitant]
     Active Substance: LORAZEPAM
  5. FONDAPARINUX [Concomitant]
     Active Substance: FONDAPARINUX
  6. LISINOPRIL HCTZ [Concomitant]
     Active Substance: HYDROCHLOROTHIAZIDE\LISINOPRIL
  7. NORCO [Concomitant]
     Active Substance: ACETAMINOPHEN\HYDROCODONE BITARTRATE
  8. HYDROCODONE [Concomitant]
     Active Substance: HYDROCODONE
  9. FUROSEMIDE. [Concomitant]
     Active Substance: FUROSEMIDE

REACTIONS (14)
  - Headache [Unknown]
  - Fatigue [Unknown]
  - Off label use [Unknown]
  - Disorientation [Recovering/Resolving]
  - Oedema peripheral [Unknown]
  - Hypertension [Unknown]
  - Loss of consciousness [Unknown]
  - Dizziness [Recovering/Resolving]
  - Fall [Unknown]
  - Apraxia [Unknown]
  - Asthenia [Unknown]
  - Subdural haemorrhage [Fatal]
  - Posterior reversible encephalopathy syndrome [Recovering/Resolving]
  - Ataxia [Unknown]

NARRATIVE: CASE EVENT DATE: 2015
